FAERS Safety Report 9773292 (Version 4)
Quarter: 2014Q3

REPORT INFORMATION
  Report Type: Spontaneous
  Country: CA (occurrence: CA)
  Receive Date: 20131219
  Receipt Date: 20140710
  Transmission Date: 20150326
  Serious: Yes (Death, Hospitalization, Other)
  Sender: FDA-Public Use
  Company Number: CA-009507513-1312CAN005658

PATIENT
  Age: 63 Year
  Sex: Male

DRUGS (4)
  1. METOPROLOL [Concomitant]
     Active Substance: METOPROLOL
     Route: 065
  2. PEGASYS [Suspect]
     Active Substance: PEGINTERFERON ALFA-2A
     Indication: CHRONIC HEPATITIS C
     Dosage: 180 MCG/0.5 ML PRE-FILLED SYRINGE (1 IN 1 WK)
     Route: 058
     Dates: start: 20131021, end: 20131202
  3. VICTRELIS [Suspect]
     Active Substance: BOCEPREVIR
     Indication: CHRONIC HEPATITIS C
     Dosage: 2400 MG (800 MG,3 IN 1 DAY)
     Route: 048
     Dates: start: 20131118, end: 20131202
  4. COPEGUS [Suspect]
     Active Substance: RIBAVIRIN
     Indication: CHRONIC HEPATITIS C
     Dosage: 49 TABLESTS/ WEEK (1400 MG, 1 IN 1 DAY)
     Route: 065
     Dates: start: 20131021, end: 20131202

REACTIONS (4)
  - Septic shock [Fatal]
  - Localised infection [Unknown]
  - Malaise [Unknown]
  - Jaundice [Unknown]

NARRATIVE: CASE EVENT DATE: 201312
